FAERS Safety Report 9745396 (Version 3)
Quarter: 2013Q4

REPORT INFORMATION
  Report Type: Report from Study
  Country: US (occurrence: US)
  Receive Date: 20131211
  Receipt Date: 20131222
  Transmission Date: 20140711
  Serious: Yes (Other)
  Sender: FDA-Public Use
  Company Number: PHHY2013US138729

PATIENT
  Age: 48 Year
  Sex: Female
  Weight: 88.44 kg

DRUGS (9)
  1. GILENYA [Suspect]
     Indication: MULTIPLE SCLEROSIS
     Dosage: 0.5 MG, QD
     Route: 048
     Dates: start: 20130308, end: 20131203
  2. GILENYA [Suspect]
     Dosage: 0.5 MG,QD
     Route: 048
  3. MIRTAZAPINE [Concomitant]
     Dosage: 15 MG, UNK
  4. DIOVAN [Concomitant]
     Dosage: 160 MG, UNK
  5. ZANAFLEX [Concomitant]
     Dosage: 2 MG, UNK
  6. VITAMIN D [Concomitant]
  7. VITAMIN B12 [Concomitant]
  8. MULTI-VIT [Concomitant]
  9. Z-PAK [Concomitant]

REACTIONS (6)
  - Vomiting [Unknown]
  - Dehydration [Unknown]
  - Nausea [Unknown]
  - Syncope [Unknown]
  - Blood pressure increased [Unknown]
  - Diarrhoea [Unknown]
